FAERS Safety Report 24366516 (Version 1)
Quarter: 2024Q3

REPORT INFORMATION
  Report Type: Spontaneous
  Country: US (occurrence: None)
  Receive Date: 20240926
  Receipt Date: 20240926
  Transmission Date: 20241017
  Serious: Yes (Disabling, Other)
  Sender: Public
  Company Number: None

PATIENT
  Age: 23 Year
  Sex: Male
  Weight: 60.75 kg

DRUGS (2)
  1. PROPECIA [Suspect]
     Active Substance: FINASTERIDE
     Indication: Alopecia
     Dosage: 1 TABLET DAILY ORAL ?
     Route: 048
     Dates: start: 20220301, end: 20240726
  2. PROPECIA [Suspect]
     Active Substance: FINASTERIDE

REACTIONS (2)
  - Erectile dysfunction [None]
  - Hypoaesthesia [None]

NARRATIVE: CASE EVENT DATE: 20240726
